FAERS Safety Report 7121399-1 (Version None)
Quarter: 2010Q4

REPORT INFORMATION
  Report Type: 
  Country: None (occurrence: None)
  Receive Date: 20101124
  Receipt Date: 20101119
  Transmission Date: 20110411
  Serious: Yes (Other)
  Sender: FDA-Public Use
  Company Number: DE-BAYER-201047738GPV

PATIENT
  Sex: Male
  Weight: 82 kg

DRUGS (1)
  1. CIPRO [Suspect]
     Indication: GENITOURINARY CHLAMYDIA INFECTION
     Dosage: TOTAL DAILY DOSE: 1000 MG  UNIT DOSE: 500 MG
     Route: 048

REACTIONS (1)
  - ARRHYTHMIA [None]
